FAERS Safety Report 4466943-8 (Version None)
Quarter: 2004Q3

REPORT INFORMATION
  Report Type: 
  Country: None (occurrence: None)
  Receive Date: 20040930
  Receipt Date: 20040916
  Transmission Date: 20050211
  Serious: Yes (Hospitalization)
  Sender: FDA-Public Use
  Company Number: 201162

PATIENT
  Age: 49 Year
  Sex: Female

DRUGS (8)
  1. AVONEX [Suspect]
     Indication: MULTIPLE SCLEROSIS
     Dosage: 30 MCG QW IM
     Route: 030
     Dates: start: 20000701
  2. AVONEX [Suspect]
     Indication: MULTIPLE SCLEROSIS
     Dosage: 30 MCG QW IM
     Route: 030
  3. DOXYCYCLINE [Concomitant]
  4. LOVASTATIN [Concomitant]
  5. CELEXA [Concomitant]
  6. PRILOSEC [Concomitant]
  7. CALCIUM [Concomitant]
  8. VITAMIN C [Concomitant]

REACTIONS (2)
  - HYPERTHYROIDISM [None]
  - THYROIDITIS [None]
